FAERS Safety Report 20496414 (Version 2)
Quarter: 2022Q1

REPORT INFORMATION
  Report Type: Spontaneous
  Country: US (occurrence: None)
  Receive Date: 20220221
  Receipt Date: 20220318
  Transmission Date: 20220424
  Serious: No
  Sender: FDA-Public Use
  Company Number: 2022A064912

PATIENT
  Age: 16182 Day
  Sex: Female
  Weight: 63.5 kg

DRUGS (1)
  1. PULMICORT TURBUHALER [Suspect]
     Active Substance: BUDESONIDE
     Indication: Asthma
     Dosage: 180 MCG
     Route: 055
     Dates: start: 20220204

REACTIONS (6)
  - Abdominal pain upper [Unknown]
  - Diarrhoea [Unknown]
  - Intentional device misuse [Unknown]
  - Device defective [Unknown]
  - Incorrect dose administered [Unknown]
  - Device malfunction [Unknown]

NARRATIVE: CASE EVENT DATE: 20220205
